FAERS Safety Report 12161356 (Version 2)
Quarter: 2016Q1

REPORT INFORMATION
  Report Type: Spontaneous
  Country: CA (occurrence: CA)
  Receive Date: 20160308
  Receipt Date: 20160311
  Transmission Date: 20160526
  Serious: Yes (Disabling)
  Sender: FDA-Public Use
  Company Number: CA-ALLERGAN-1638076US

PATIENT
  Age: 62 Year
  Sex: Female

DRUGS (4)
  1. BACLOFEN. [Concomitant]
     Active Substance: BACLOFEN
     Dosage: 30 MG, QHS
     Route: 048
  2. BOTOX [Suspect]
     Active Substance: ONABOTULINUMTOXINA
     Dosage: 500 UNITS, SINGLE
     Route: 030
     Dates: start: 20150914, end: 20150914
  3. BOTOX [Suspect]
     Active Substance: ONABOTULINUMTOXINA
     Indication: MUSCLE SPASTICITY
     Dosage: 600 UNITS, SINGLE
     Route: 030
     Dates: start: 20160111, end: 20160111
  4. BACLOFEN. [Concomitant]
     Active Substance: BACLOFEN
     Indication: MUSCLE SPASTICITY
     Dosage: 25 MG, BID
     Route: 048

REACTIONS (11)
  - Constipation [Unknown]
  - Overdose [Unknown]
  - Dysstasia [Unknown]
  - Asthenia [Unknown]
  - Cough [Unknown]
  - Fatigue [Unknown]
  - Muscular weakness [Recovering/Resolving]
  - Dysarthria [Unknown]
  - Off label use [Unknown]
  - Muscular weakness [Unknown]
  - Dysphagia [Unknown]
